FAERS Safety Report 8128736-X (Version None)
Quarter: 2012Q1

REPORT INFORMATION
  Report Type: 
  Country: None (occurrence: None)
  Receive Date: 20120210
  Receipt Date: 20110310
  Transmission Date: 20120608
  Serious: No
  Sender: FDA-Public Use
  Company Number: US-BRISTOL-MYERS SQUIBB COMPANY-15556152

PATIENT
  Sex: Female

DRUGS (1)
  1. ORENCIA [Suspect]
     Dosage: 3RD OR 4TH INFUSION

REACTIONS (3)
  - THERAPEUTIC RESPONSE DECREASED [None]
  - NAUSEA [None]
  - ASTHENIA [None]
